FAERS Safety Report 11130958 (Version 2)
Quarter: 2015Q4

REPORT INFORMATION
  Report Type: Report from Study
  Country: US (occurrence: US)
  Receive Date: 20150522
  Receipt Date: 20151119
  Transmission Date: 20160304
  Serious: Yes (Hospitalization)
  Sender: FDA-Public Use
  Company Number: US-BIOGENIDEC-2015BI063113

PATIENT
  Age: 50 Year
  Sex: Female
  Weight: 104 kg

DRUGS (4)
  1. OXYBUTYNIN [Concomitant]
     Active Substance: OXYBUTYNIN
  2. MARINOL [Concomitant]
     Active Substance: DRONABINOL
  3. ADDERALL [Concomitant]
     Active Substance: AMPHETAMINE ASPARTATE\AMPHETAMINE SULFATE\DEXTROAMPHETAMINE SACCHARATE\DEXTROAMPHETAMINE SULFATE
  4. TYSABRI [Suspect]
     Active Substance: NATALIZUMAB
     Indication: MULTIPLE SCLEROSIS
     Route: 042
     Dates: start: 20101210

REACTIONS (3)
  - Cerebrospinal fluid leakage [Unknown]
  - Multiple sclerosis [Unknown]
  - Headache [Unknown]

NARRATIVE: CASE EVENT DATE: 201505
